FAERS Safety Report 6420652-4 (Version None)
Quarter: 2009Q4

REPORT INFORMATION
  Report Type: 
  Country: None (occurrence: None)
  Receive Date: 20091027
  Receipt Date: 20091014
  Transmission Date: 20100525
  Serious: Yes (Other)
  Sender: FDA-Public Use
  Company Number: 238644K09USA

PATIENT
  Age: 50 Year
  Sex: Female

DRUGS (12)
  1. REBIF [Suspect]
     Indication: MULTIPLE SCLEROSIS
     Dosage: 44 MCG, 3 IN 1 WEEKS, SUBCUTANEOUS
     Route: 058
     Dates: start: 20090314
  2. 8 HOUR TYLENOL (PARACETAMOL) [Concomitant]
  3. ALEVE [Concomitant]
  4. BACLOFEN [Concomitant]
  5. MORVASC (AMLODIPINE) [Concomitant]
  6. PROVIGIL [Concomitant]
  7. NEXIUM [Concomitant]
  8. ZANTAC 150 [Concomitant]
  9. PULMICORT [Concomitant]
  10. BENTYL [Concomitant]
  11. ASTELIN [Concomitant]
  12. MIACALCIN [Concomitant]

REACTIONS (12)
  - ASTHENIA [None]
  - CHOLELITHIASIS [None]
  - CONTUSION [None]
  - EAR INFECTION [None]
  - FATIGUE [None]
  - HEADACHE [None]
  - INCISION SITE HAEMORRHAGE [None]
  - INJECTION SITE PAIN [None]
  - INJECTION SITE PRURITUS [None]
  - MULTIPLE SCLEROSIS [None]
  - POSTOPERATIVE WOUND INFECTION [None]
  - SUTURE RELATED COMPLICATION [None]
